FAERS Safety Report 14971627 (Version 1)
Quarter: 2018Q2

REPORT INFORMATION
  Report Type: Report from Study
  Country: None (occurrence: KR)
  Receive Date: 20180604
  Receipt Date: 20180604
  Transmission Date: 20180711
  Serious: Yes (Other)
  Sender: FDA-Public Use
  Company Number: KR-ABBVIE-18K-090-2374836-00

PATIENT

DRUGS (1)
  1. HUMIRA [Suspect]
     Active Substance: ADALIMUMAB
     Indication: CROHN^S DISEASE
     Route: 058

REACTIONS (9)
  - Pain [Unknown]
  - Enteritis [Unknown]
  - Intestinal stenosis [Unknown]
  - Diarrhoea [Unknown]
  - Hypophagia [Unknown]
  - Haematochezia [Unknown]
  - Weight decreased [Unknown]
  - Pyrexia [Unknown]
  - Abdominal pain [Unknown]
